FAERS Safety Report 18202796 (Version 1)
Quarter: 2020Q3

REPORT INFORMATION
  Report Type: Spontaneous
  Country: FR (occurrence: FR)
  Receive Date: 20200827
  Receipt Date: 20200827
  Transmission Date: 20201103
  Serious: Yes (Hospitalization)
  Sender: FDA-Public Use
  Company Number: FR-PFIZER INC-2020328908

PATIENT
  Sex: Female
  Weight: 64 kg

DRUGS (6)
  1. ZARZIO [Suspect]
     Active Substance: FILGRASTIM
     Indication: BONE MARROW FAILURE
     Dosage: UNK
     Route: 058
     Dates: start: 202007, end: 20200804
  2. YESCARTA [Suspect]
     Active Substance: AXICABTAGENE CILOLEUCEL
     Indication: DIFFUSE LARGE B-CELL LYMPHOMA
     Dosage: UNK
     Route: 041
     Dates: start: 20200728, end: 20200728
  3. CEFEPIME [Suspect]
     Active Substance: CEFEPIME HYDROCHLORIDE
     Indication: PYREXIA
     Dosage: 6 G, 1X/DAY
     Route: 042
     Dates: start: 20200730, end: 20200802
  4. KEPPRA [Suspect]
     Active Substance: LEVETIRACETAM
     Indication: PROPHYLAXIS
     Dosage: 1500 MG, 1X/DAY
     Route: 048
     Dates: start: 202007, end: 20200804
  5. TRIFLUCAN [Suspect]
     Active Substance: FLUCONAZOLE
     Indication: PROPHYLAXIS
     Dosage: 400 MG, 1X/DAY
     Route: 048
     Dates: start: 202007, end: 20200804
  6. ROACTEMRA [Suspect]
     Active Substance: TOCILIZUMAB
     Indication: CYTOKINE RELEASE SYNDROME
     Dosage: 8 MG/KG, 1X/DAY
     Route: 042
     Dates: start: 20200801, end: 20200802

REACTIONS (2)
  - Dermatitis bullous [Recovering/Resolving]
  - Lichenoid keratosis [Recovering/Resolving]

NARRATIVE: CASE EVENT DATE: 20200802
